FAERS Safety Report 9719917 (Version 2)
Quarter: 2014Q1

REPORT INFORMATION
  Report Type: Spontaneous
  Country: JP (occurrence: JP)
  Receive Date: 20131128
  Receipt Date: 20140303
  Transmission Date: 20141002
  Serious: Yes (Hospitalization, Disabling)
  Sender: FDA-Public Use
  Company Number: JP-JNJFOC-20131114819

PATIENT
  Age: 77 Year
  Sex: Female
  Weight: 54 kg

DRUGS (12)
  1. XARELTO [Suspect]
     Indication: CEREBROVASCULAR ACCIDENT PROPHYLAXIS
     Route: 048
     Dates: start: 20131005
  2. XARELTO [Suspect]
     Indication: CEREBROVASCULAR ACCIDENT PROPHYLAXIS
     Route: 048
     Dates: start: 20130602, end: 20131004
  3. XARELTO [Suspect]
     Indication: ATRIAL FIBRILLATION
     Route: 048
     Dates: start: 20131005
  4. XARELTO [Suspect]
     Indication: ATRIAL FIBRILLATION
     Route: 048
     Dates: start: 20130602, end: 20131004
  5. MUCOSTA [Concomitant]
     Indication: GASTRIC ULCER
     Route: 048
  6. MEDET [Concomitant]
     Indication: DIABETES MELLITUS
     Route: 048
  7. ARTIST [Concomitant]
     Indication: CARDIAC FAILURE
     Route: 048
  8. ARTIST [Concomitant]
     Indication: HYPERTENSION
     Route: 048
  9. SELARA (EPLERENONE) [Concomitant]
     Indication: CARDIAC FAILURE
     Route: 048
  10. SELARA (EPLERENONE) [Concomitant]
     Indication: HYPERTENSION
     Route: 048
  11. FLUITRAN [Concomitant]
     Indication: CARDIAC FAILURE
     Route: 048
  12. FLUITRAN [Concomitant]
     Indication: HYPERTENSION
     Route: 048

REACTIONS (1)
  - Cerebral infarction [Recovered/Resolved with Sequelae]
